FAERS Safety Report 17667773 (Version 3)
Quarter: 2020Q2

REPORT INFORMATION
  Report Type: Spontaneous
  Country: PL (occurrence: PL)
  Receive Date: 20200414
  Receipt Date: 20200529
  Transmission Date: 20200713
  Serious: Yes (Hospitalization)
  Sender: FDA-Public Use
  Company Number: NVSC2020PL099329

PATIENT
  Age: 71 Year
  Sex: Female

DRUGS (10)
  1. LENALIDOMIDE [Suspect]
     Active Substance: LENALIDOMIDE
     Indication: PLASMA CELL MYELOMA
     Dosage: 10 MG (MOST RECENT DOSE RECEIVED ON 23 DEC 2019)
     Route: 048
     Dates: start: 20190820
  2. VELCADE [Suspect]
     Active Substance: BORTEZOMIB
     Indication: PLASMA CELL MYELOMA
     Dosage: MOST RECENT DOSE RECEIVED ON 17-DEC-2019
     Route: 058
     Dates: start: 20190820
  3. POLPRAZOL [Concomitant]
     Active Substance: OMEPRAZOLE
     Indication: PROPHYLAXIS AGAINST GASTROINTESTINAL ULCER
     Dosage: 20 MG, QD
     Route: 048
     Dates: start: 20190820
  4. DEXAMETHASONE. [Suspect]
     Active Substance: DEXAMETHASONE
     Indication: PLASMA CELL MYELOMA
     Dosage: 20 MG (MOST RECENT DOSE RECEIVED ON 21 DEC 2019)
     Route: 048
     Dates: start: 20190820
  5. HEVIRAN [Concomitant]
     Active Substance: ACYCLOVIR
     Indication: ANTIVIRAL PROPHYLAXIS
     Dosage: 800 MG, QD
     Route: 048
     Dates: start: 20190820
  6. METFORMAX [Concomitant]
     Active Substance: METFORMIN HYDROCHLORIDE
     Indication: TYPE 2 DIABETES MELLITUS
     Dosage: 1000 MG, QD
     Route: 048
  7. NEUROVIT [Concomitant]
     Indication: PERIPHERAL SENSORY NEUROPATHY
     Dosage: 2 DF, QD
     Route: 048
     Dates: start: 20191119
  8. NEBILET [Concomitant]
     Active Substance: NEBIVOLOL
     Indication: HYPERTENSION
     Dosage: 6 MG, QD
     Route: 048
  9. GENSULIN N [Concomitant]
     Indication: TYPE 2 DIABETES MELLITUS
     Dosage: 30 IU, QD
     Route: 058
  10. LYRICA [Concomitant]
     Active Substance: PREGABALIN
     Indication: PERIPHERAL SENSORY NEUROPATHY
     Dosage: 150 MG, QD
     Route: 048
     Dates: start: 20191119

REACTIONS (2)
  - Balance disorder [Recovered/Resolved with Sequelae]
  - Orthostatic hypotension [Recovered/Resolved with Sequelae]

NARRATIVE: CASE EVENT DATE: 20191224
